FAERS Safety Report 23382416 (Version 1)
Quarter: 2024Q1

REPORT INFORMATION
  Report Type: Report from Study
  Country: US (occurrence: US)
  Receive Date: 20240109
  Receipt Date: 20240109
  Transmission Date: 20240410
  Serious: Yes (Hospitalization, Other)
  Sender: FDA-Public Use
  Company Number: US-UCBSA-2024000811

PATIENT
  Age: 87 Year
  Sex: Male

DRUGS (2)
  1. ROZANOLIXIZUMAB [Suspect]
     Active Substance: ROZANOLIXIZUMAB
     Indication: Myasthenia gravis
     Dosage: UNK (CYCLE 1)
     Route: 058
     Dates: start: 2023, end: 2023
  2. ROZANOLIXIZUMAB [Suspect]
     Active Substance: ROZANOLIXIZUMAB
     Dosage: 560 MILLIGRAM, WEEKLY (QW) FOR 6 WEEKS (CYCLE 2)
     Route: 058
     Dates: start: 20231117, end: 2023

REACTIONS (1)
  - Myasthenia gravis crisis [Unknown]

NARRATIVE: CASE EVENT DATE: 20231201
